FAERS Safety Report 7293954-X (Version None)
Quarter: 2011Q1

REPORT INFORMATION
  Report Type: 
  Country: None (occurrence: None)
  Receive Date: 20110215
  Receipt Date: 20110210
  Transmission Date: 20110831
  Serious: Yes (Other)
  Sender: FDA-Public Use
  Company Number: IE-PFIZER INC-2011030950

PATIENT
  Age: 37 Year
  Sex: Female

DRUGS (2)
  1. MIRENA [Concomitant]
     Indication: CONTRACEPTION
     Dosage: 52 MG, UNK
     Dates: start: 20101220, end: 20110127
  2. CHAMPIX [Suspect]
     Indication: SMOKING CESSATION THERAPY
     Dosage: 1 MG, 2X/DAY
     Route: 048
     Dates: start: 20110113, end: 20110124

REACTIONS (1)
  - PARAESTHESIA [None]
